FAERS Safety Report 9051954 (Version 1)
Quarter: 2013Q1

REPORT INFORMATION
  Report Type: Report from Study
  Country: CA (occurrence: CA)
  Receive Date: 20130207
  Receipt Date: 20130207
  Transmission Date: 20140127
  Serious: Yes (Hospitalization, Other)
  Sender: FDA-Public Use
  Company Number: CA-JNJFOC-20121209503

PATIENT
  Sex: Female
  Weight: 74.95 kg

DRUGS (5)
  1. REMICADE [Suspect]
     Indication: COLITIS ULCERATIVE
     Route: 042
     Dates: start: 20120905
  2. REMICADE [Suspect]
     Indication: COLITIS ULCERATIVE
     Route: 042
     Dates: start: 20121211
  3. PREDNISONE [Suspect]
     Indication: COLITIS ULCERATIVE
     Route: 065
  4. PANTOLOC [Concomitant]
     Route: 065
  5. PENNSAID [Concomitant]
     Dosage: ON HOLD WHILE TAKING PREDNISONE
     Route: 065

REACTIONS (6)
  - Colitis ulcerative [Recovering/Resolving]
  - Visual acuity reduced [Unknown]
  - Surgery [Unknown]
  - Oropharyngeal pain [Unknown]
  - Nasal congestion [Unknown]
  - Aphthous stomatitis [Recovered/Resolved]
